FAERS Safety Report 7356006-6 (Version None)
Quarter: 2011Q1

REPORT INFORMATION
  Report Type: 
  Country: None (occurrence: None)
  Receive Date: 20110316
  Receipt Date: 20110112
  Transmission Date: 20110831
  Serious: No
  Sender: FDA-Public Use
  Company Number: US-ABBOTT-11P-163-0697515-00

PATIENT
  Sex: Female
  Weight: 76.272 kg

DRUGS (4)
  1. TRILIPIX [Suspect]
     Indication: BLOOD TRIGLYCERIDES INCREASED
     Dosage: 1 IN 1 DAY, QHS
     Route: 048
     Dates: start: 20101223, end: 20101225
  2. TRILIPIX [Suspect]
     Dosage: AT BEDTIME
     Route: 048
     Dates: start: 20110111
  3. LIPITOR [Concomitant]
     Indication: BLOOD CHOLESTEROL INCREASED
     Dates: start: 20060101
  4. RANITIDINE [Concomitant]
     Indication: GASTROOESOPHAGEAL REFLUX DISEASE

REACTIONS (6)
  - LETHARGY [None]
  - PYREXIA [None]
  - MYALGIA [None]
  - BONE PAIN [None]
  - NAUSEA [None]
  - CHILLS [None]
